FAERS Safety Report 6421790-2 (Version None)
Quarter: 2009Q4

REPORT INFORMATION
  Report Type: 
  Country: None (occurrence: None)
  Receive Date: 20091030
  Receipt Date: 20091023
  Transmission Date: 20100525
  Serious: Yes (Life-Threatening, Disabling, Other)
  Sender: FDA-Public Use
  Company Number: A0813617A

PATIENT
  Age: 34 Year
  Sex: Female

DRUGS (2)
  1. TREXIMET [Suspect]
     Indication: MIGRAINE
     Dosage: 1TAB SINGLE DOSE
     Route: 048
     Dates: start: 20091023
  2. ALEVE [Concomitant]

REACTIONS (2)
  - LIP SWELLING [None]
  - PHARYNGEAL OEDEMA [None]
